FAERS Safety Report 22090258 (Version 1)
Quarter: 2023Q1

REPORT INFORMATION
  Report Type: Spontaneous
  Country: US (occurrence: US)
  Receive Date: 20230313
  Receipt Date: 20230313
  Transmission Date: 20230417
  Serious: No
  Sender: FDA-Public Use
  Company Number: US-BRISTOL-MYERS SQUIBB COMPANY-2023-035474

PATIENT
  Age: 25 Year
  Sex: Male
  Weight: 79.38 kg

DRUGS (1)
  1. THALOMID [Suspect]
     Active Substance: THALIDOMIDE
     Indication: Aphthous ulcer
     Dosage: FRQUENCY:  DAILY FOR DAYS 1-28 OF 28 DAY CYCLE
     Route: 048
     Dates: start: 20110901

REACTIONS (4)
  - Product dose omission issue [Unknown]
  - Inflammation [Recovered/Resolved]
  - Condition aggravated [Recovered/Resolved]
  - Off label use [Unknown]

NARRATIVE: CASE EVENT DATE: 20110901
